FAERS Safety Report 5736092-7 (Version None)
Quarter: 2008Q2

REPORT INFORMATION
  Report Type: 
  Country: None (occurrence: None)
  Receive Date: 20080513
  Receipt Date: 20080502
  Transmission Date: 20081010
  Serious: No
  Sender: FDA-Public Use
  Company Number: JP-BAXTER-2008BH004653

PATIENT
  Age: 77 Year
  Sex: Male

DRUGS (2)
  1. SORBITOL 3% IN PLASTIC CONTAINER [Suspect]
     Indication: TRANSURETHRAL PROSTATECTOMY
     Dosage: DOSE UNIT:UNKNOWN
     Route: 066
  2. DIBUCAINE [Concomitant]
     Indication: SPINAL ANAESTHESIA
     Route: 024

REACTIONS (3)
  - HYPONATRAEMIA [None]
  - PULMONARY OEDEMA [None]
  - TRANSURETHRAL RESECTION SYNDROME [None]
